FAERS Safety Report 10674679 (Version 1)
Quarter: 2014Q4

REPORT INFORMATION
  Report Type: Spontaneous
  Country: US (occurrence: None)
  Receive Date: 20141210
  Receipt Date: 20141210
  Transmission Date: 20150529
  Serious: Yes (Hospitalization)
  Sender: FDA-Public Use
  Company Number: 20131205CINRY5472

PATIENT
  Age: 37 Year
  Sex: Female

DRUGS (1)
  1. CINRYZE [Suspect]
     Active Substance: HUMAN C1-ESTERASE INHIBITOR
     Indication: HEREDITARY ANGIOEDEMA
     Dosage: 1000 U, OTHER, INTRAVENOUS
     Route: 042
     Dates: start: 20131107

REACTIONS (2)
  - Angioedema [None]
  - Drug dose omission [None]
